APPROVED DRUG PRODUCT: LIDOCAINE HYDROCHLORIDE 0.2% AND DEXTROSE 5% IN PLASTIC CONTAINER
Active Ingredient: LIDOCAINE HYDROCHLORIDE
Strength: 200MG/100ML
Dosage Form/Route: INJECTABLE;INJECTION
Application: N018967 | Product #001
Applicant: B BRAUN MEDICAL INC
Approved: Mar 30, 1984 | RLD: No | RS: No | Type: DISCN